FAERS Safety Report 16259282 (Version 1)
Quarter: 2019Q2

REPORT INFORMATION
  Report Type: Spontaneous
  Country: US (occurrence: US)
  Receive Date: 20190501
  Receipt Date: 20190501
  Transmission Date: 20190711
  Serious: No
  Sender: FDA-Public Use
  Company Number: PHEH2019US018319

PATIENT
  Sex: Female

DRUGS (1)
  1. TRAVATAN Z [Suspect]
     Active Substance: TRAVOPROST
     Indication: GLAUCOMA
     Route: 047

REACTIONS (5)
  - Ocular hyperaemia [Unknown]
  - Photophobia [Unknown]
  - Hypersensitivity [Unknown]
  - Eye pain [Unknown]
  - Nausea [Unknown]
